FAERS Safety Report 6072176-4 (Version None)
Quarter: 2009Q1

REPORT INFORMATION
  Report Type: 
  Country: None (occurrence: None)
  Receive Date: 20090210
  Receipt Date: 20090209
  Transmission Date: 20090719
  Serious: Yes (Hospitalization)
  Sender: FDA-Public Use
  Company Number: B0558566A

PATIENT
  Age: 83 Year
  Sex: Female

DRUGS (7)
  1. DILATREND [Suspect]
     Indication: DRUG USE FOR UNKNOWN INDICATION
     Dosage: 6.25MG TWICE PER DAY
     Route: 048
  2. AMARYL [Suspect]
     Indication: DRUG USE FOR UNKNOWN INDICATION
     Dosage: 1MG PER DAY
     Route: 048
     Dates: end: 20081230
  3. ASPIRIN [Suspect]
     Indication: DRUG USE FOR UNKNOWN INDICATION
     Route: 048
  4. PROCAPTAN [Concomitant]
  5. NORVASC [Concomitant]
  6. LASIX [Concomitant]
  7. SIMVASTATIN [Concomitant]

REACTIONS (2)
  - HYPOGLYCAEMIA [None]
  - SOMNOLENCE [None]
